FAERS Safety Report 10855227 (Version 1)
Quarter: 2015Q1

REPORT INFORMATION
  Report Type: Spontaneous
  Country: US (occurrence: None)
  Receive Date: 20150213
  Receipt Date: 20150213
  Transmission Date: 20150721
  Serious: Yes (Death, Hospitalization, Other)
  Sender: FDA-Public Use
  Company Number: US-TORRENT-00000743

PATIENT
  Age: 82 Year
  Sex: Female
  Weight: 50.8 kg

DRUGS (7)
  1. ATORVASTATIN 40 MG (ATORVASTATIN) [Concomitant]
  2. CLOPIDOGREL [Concomitant]
     Active Substance: CLOPIDOGREL BISULFATE
  3. ESOMEPRAZOLE 40 MG (ESOMEPRAZOLE) [Concomitant]
  4. SULFAMETHOXAZOLE TMP (SULFAMETHOXAZOLE) [Concomitant]
  5. CITALOPRAM HYDROBROMIDE (CITALOPRAM HYDROBROMIDE) (10 MILLIGRAM(S)) (TORRENT PHARMACEUTICALS LTD.) [Suspect]
     Active Substance: CITALOPRAM HYDROBROMIDE
     Indication: DEPRESSION
     Dates: start: 20131106
  6. RAMIPRIL 5 MG (RAMIPRIL) [Concomitant]
  7. FAMETHOXAZOLE TMP (TRIMETHOPRIM) [Concomitant]

REACTIONS (5)
  - Locked-in syndrome [None]
  - Unresponsive to stimuli [None]
  - Fall [None]
  - Head injury [None]
  - Cerebral haemorrhage [None]

NARRATIVE: CASE EVENT DATE: 20131129
